FAERS Safety Report 10332579 (Version 2)
Quarter: 2014Q3

REPORT INFORMATION
  Report Type: Report from Study
  Country: CA (occurrence: CA)
  Receive Date: 20140722
  Receipt Date: 20140806
  Transmission Date: 20150326
  Serious: Yes (Death, Other)
  Sender: FDA-Public Use
  Company Number: CA-ABBVIE-14P-028-1263086-00

PATIENT
  Age: 85 Year
  Sex: Male

DRUGS (1)
  1. LUPRON DEPOT [Suspect]
     Active Substance: LEUPROLIDE ACETATE
     Indication: PRODUCT USED FOR UNKNOWN INDICATION
     Dates: start: 20121120, end: 20130306

REACTIONS (4)
  - Myocardial infarction [Fatal]
  - Hyperkalaemia [Unknown]
  - Psoriasis [Unknown]
  - Colon cancer [Unknown]

NARRATIVE: CASE EVENT DATE: 20130405
